FAERS Safety Report 24762922 (Version 5)
Quarter: 2025Q4

REPORT INFORMATION
  Report Type: Report from Study
  Country: CA (occurrence: CA)
  Receive Date: 20241222
  Receipt Date: 20251030
  Transmission Date: 20260117
  Serious: Yes (Hospitalization)
  Sender: JOHNSON AND JOHNSON
  Company Number: CA-JNJFOC-20241246787

PATIENT
  Sex: Female

DRUGS (2)
  1. REMICADE [Suspect]
     Active Substance: INFLIXIMAB
     Indication: Crohn^s disease
     Route: 041
     Dates: start: 20170525
  2. REMICADE [Suspect]
     Active Substance: INFLIXIMAB
     Route: 041

REACTIONS (13)
  - Pneumonia [Unknown]
  - Clostridium difficile infection [Unknown]
  - Catatonia [Unknown]
  - Escherichia sepsis [Unknown]
  - Hospitalisation [Unknown]
  - Blood creatine increased [Recovered/Resolved]
  - Nasopharyngitis [Recovering/Resolving]
  - Diarrhoea [Unknown]
  - Illness [Unknown]
  - Speech disorder [Unknown]
  - Product dose omission issue [Unknown]
  - Incorrect drug administration rate [Unknown]
  - Glomerular filtration rate decreased [Unknown]
